FAERS Safety Report 8782597 (Version 2)
Quarter: 2012Q4

REPORT INFORMATION
  Report Type: 
  Country: BR (occurrence: BR)
  Receive Date: 20120913
  Receipt Date: 20121012
  Transmission Date: 20130627
  Serious: No
  Sender: FDA-Public Use
  Company Number: BR-PFIZER INC-2012225200

PATIENT
  Age: 52 Year
  Sex: Male

DRUGS (5)
  1. CHAMPIX [Suspect]
     Indication: SMOKING CESSATION THERAPY
     Dosage: UNK
     Route: 048
     Dates: start: 201209, end: 201209
  2. CHAMPIX [Suspect]
     Dosage: 1 mg, 2x/day
     Route: 048
     Dates: start: 201209, end: 201209
  3. PIPOTIAZINE [Suspect]
     Indication: SCHIZOPHRENIA
     Dosage: one ampoule, every 21 days
  4. RIVOTRIL [Concomitant]
     Indication: INSOMNIA
     Dosage: 15 drops at night
  5. AMPLICTIL [Concomitant]
     Indication: SLEEP DISORDER
     Dosage: 15 drops at night

REACTIONS (1)
  - Tremor [Unknown]
